FAERS Safety Report 19701010 (Version 1)
Quarter: 2021Q3

REPORT INFORMATION
  Report Type: Report from Study
  Country: DE (occurrence: DE)
  Receive Date: 20210813
  Receipt Date: 20210813
  Transmission Date: 20211014
  Serious: Yes (Hospitalization)
  Sender: FDA-Public Use
  Company Number: DE-MYLANLABS-2021M1051176

PATIENT
  Age: 45 Year
  Sex: Male

DRUGS (3)
  1. ALOFISEL [Suspect]
     Active Substance: DARVADSTROCEL
     Indication: CROHN^S DISEASE
     Dosage: 5 MILLION CELLS/ML WITH 2 VIALS WERE INJECTED AROUND THE INTERNAL OPENINGS (TRANSANAL APPROACH..
     Route: 065
  2. ADALIMUMAB [Suspect]
     Active Substance: ADALIMUMAB
     Indication: CROHN^S DISEASE
     Route: 065
  3. INFLIXIMAB [Suspect]
     Active Substance: INFLIXIMAB
     Indication: CROHN^S DISEASE
     Dosage: UNK
     Route: 065

REACTIONS (1)
  - Drug ineffective [Unknown]
